FAERS Safety Report 8057319-5 (Version None)
Quarter: 2012Q1

REPORT INFORMATION
  Report Type: 
  Country: None (occurrence: None)
  Receive Date: 20120119
  Receipt Date: 20120112
  Transmission Date: 20120608
  Serious: Yes (Other)
  Sender: FDA-Public Use
  Company Number: PHHY2012CA003070

PATIENT
  Sex: Female

DRUGS (3)
  1. IRBESARTAN+HYDROCHLOROTHIAZIDE SANDOZ [Suspect]
     Dosage: UNK, 300/25MG
     Route: 048
  2. IRBESARTAN+HYDROCHLOROTHIAZIDE SANDOZ [Suspect]
     Indication: HYPERTENSION
     Dosage: 1 DF, 300/25MG
     Route: 048
  3. IRBESARTAN+HYDROCHLOROTHIAZIDE SANDOZ [Suspect]
     Dosage: 2 DF, 150/12.5MG
     Route: 048
     Dates: start: 20111216

REACTIONS (4)
  - FEELING ABNORMAL [None]
  - SYNCOPE [None]
  - DIZZINESS [None]
  - BLOOD PRESSURE DECREASED [None]
